FAERS Safety Report 24525870 (Version 1)
Quarter: 2024Q4

REPORT INFORMATION
  Report Type: Spontaneous
  Country: US (occurrence: US)
  Receive Date: 20241020
  Receipt Date: 20241020
  Transmission Date: 20250115
  Serious: No
  Sender: BAUSCH AND LOMB
  Company Number: US-BAUSCHBL-2024BNL035840

PATIENT
  Age: 84 Year
  Sex: Male
  Weight: 88.45 kg

DRUGS (1)
  1. XIIDRA [Suspect]
     Active Substance: LIFITEGRAST
     Indication: Dry eye
     Route: 047
     Dates: start: 2022

REACTIONS (1)
  - Eyelid skin dryness [Unknown]

NARRATIVE: CASE EVENT DATE: 20240101
